FAERS Safety Report 6631351-8 (Version None)
Quarter: 2010Q1

REPORT INFORMATION
  Report Type: 
  Country: None (occurrence: None)
  Receive Date: 20100311
  Receipt Date: 20100311
  Transmission Date: 20100710
  Serious: Yes (Other)
  Sender: FDA-Public Use
  Company Number: None

PATIENT
  Age: 17 Year
  Sex: Male
  Weight: 74.8435 kg

DRUGS (4)
  1. RISPERDAL [Suspect]
     Indication: SCHIZOAFFECTIVE DISORDER
     Dosage: 6MG DAILY PO
     Route: 048
  2. ABILIFY [Concomitant]
  3. ZOLOFT [Concomitant]
  4. CELEXA [Concomitant]

REACTIONS (6)
  - ACNE [None]
  - AMNESIA [None]
  - CONFUSIONAL STATE [None]
  - DIARRHOEA [None]
  - HAEMATOCHEZIA [None]
  - WEIGHT DECREASED [None]
